FAERS Safety Report 8296337-9 (Version None)
Quarter: 2012Q2

REPORT INFORMATION
  Report Type: 
  Country: None (occurrence: None)
  Receive Date: 20120418
  Receipt Date: 20120413
  Transmission Date: 20120825
  Serious: Yes (Other)
  Sender: FDA-Public Use
  Company Number: US-PFIZER INC-2012092809

PATIENT
  Sex: Female
  Weight: 72.562 kg

DRUGS (5)
  1. SYNTHROID [Concomitant]
     Indication: THYROID DISORDER
     Dosage: 150 MG, DAILY
  2. DILANTIN [Suspect]
     Indication: CONVULSION
     Dosage: 800 MG, DAILY
     Dates: start: 19841101, end: 20120301
  3. TEGRETOL [Concomitant]
     Indication: CONVULSION
     Dosage: UNK
  4. TOPAMAX [Concomitant]
     Dosage: 200 MG, 2X/DAY
  5. CALCIUM [Concomitant]
     Dosage: 500 MG, DAILY

REACTIONS (5)
  - TOOTH DISORDER [None]
  - WEIGHT DECREASED [None]
  - GINGIVAL SWELLING [None]
  - TOOTHACHE [None]
  - BONE DENSITY DECREASED [None]
